FAERS Safety Report 26047549 (Version 1)
Quarter: 2025Q4

REPORT INFORMATION
  Report Type: Spontaneous
  Country: US (occurrence: US)
  Receive Date: 20251114
  Receipt Date: 20251114
  Transmission Date: 20260118
  Serious: No
  Sender: ROCHE
  Company Number: US-ROCHE-10000430746

PATIENT
  Sex: Male

DRUGS (6)
  1. XOLAIR PFS [Suspect]
     Active Substance: OMALIZUMAB
     Indication: Asthma
     Route: 058
     Dates: start: 202505
  2. XOLAIR PFS [Suspect]
     Active Substance: OMALIZUMAB
  3. Albuterol SU AER 108 (90 [Concomitant]
  4. Cetrizine H Tab 10 mg [Concomitant]
  5. Fluticasone AER 110 MCG/A [Concomitant]
  6. MONTELUKAST [Concomitant]
     Active Substance: MONTELUKAST

REACTIONS (2)
  - Respiratory syncytial virus infection [Unknown]
  - Asthma [Unknown]
